FAERS Safety Report 7246805-3 (Version None)
Quarter: 2011Q1

REPORT INFORMATION
  Report Type: 
  Country: None (occurrence: None)
  Receive Date: 20110127
  Receipt Date: 20110120
  Transmission Date: 20110831
  Serious: Yes (Hospitalization, Other)
  Sender: FDA-Public Use
  Company Number: US-PFIZER INC-2008031694

PATIENT
  Sex: Female
  Weight: 55.79 kg

DRUGS (13)
  1. MIRTAZAPINE [Concomitant]
  2. CHANTIX [Suspect]
     Indication: SMOKING CESSATION THERAPY
     Dosage: UNK MG, UNK
     Route: 048
     Dates: start: 20070101
  3. COPAXONE [Concomitant]
  4. CHANTIX [Suspect]
     Dosage: UNK
  5. TOPAMAX [Concomitant]
     Indication: HEADACHE
  6. HYDROCODONE [Concomitant]
     Indication: MUSCULOSKELETAL DISCOMFORT
  7. PROMETHAZINE [Concomitant]
     Indication: NAUSEA
  8. PROMETHAZINE [Concomitant]
     Indication: VOMITING
  9. CYMBALTA [Concomitant]
     Indication: HEADACHE
  10. ALPRAZOLAM [Concomitant]
     Indication: ANXIETY
  11. HYDROCODONE [Concomitant]
  12. MECLIZINE [Concomitant]
     Indication: BALANCE DISORDER
  13. TIZANIDINE [Concomitant]

REACTIONS (22)
  - HOMICIDAL IDEATION [None]
  - VIOLENCE-RELATED SYMPTOM [None]
  - PNEUMONIA [None]
  - FEMUR FRACTURE [None]
  - PSYCHOMOTOR HYPERACTIVITY [None]
  - DISTURBANCE IN ATTENTION [None]
  - MEMORY IMPAIRMENT [None]
  - CHRONIC OBSTRUCTIVE PULMONARY DISEASE [None]
  - ANXIETY [None]
  - CENTRAL NERVOUS SYSTEM LESION [None]
  - DYSPNOEA [None]
  - CONFUSIONAL STATE [None]
  - DYSPHAGIA [None]
  - STUPOR [None]
  - SUICIDE ATTEMPT [None]
  - NERVOUSNESS [None]
  - DEHYDRATION [None]
  - LOSS OF CONSCIOUSNESS [None]
  - SUICIDAL IDEATION [None]
  - DIARRHOEA [None]
  - FALL [None]
  - PALPITATIONS [None]
